FAERS Safety Report 8557387-8 (Version None)
Quarter: 2012Q3

REPORT INFORMATION
  Report Type: 
  Country: None (occurrence: None)
  Receive Date: 20120801
  Receipt Date: 20120518
  Transmission Date: 20120928
  Serious: No
  Sender: FDA-Public Use
  Company Number: US-COVIDIEN/TYCO HEALTHCARE/MALLINCKRODT-T201201915

PATIENT
  Sex: Female

DRUGS (5)
  1. NEURONTIN [Concomitant]
     Indication: NEUROPATHY PERIPHERAL
     Dosage: UNK
  2. FENTANYL CITRATE [Suspect]
     Indication: PAIN
     Dosage: 600 UG, QID
     Dates: start: 20100101, end: 20120312
  3. FENTANYL CITRATE [Suspect]
     Indication: BREAKTHROUGH PAIN
  4. RESTORIL                           /00393701/ [Concomitant]
     Indication: SLEEP DISORDER THERAPY
     Dosage: UNK
  5. MORPHINE [Concomitant]
     Indication: PAIN
     Dosage: UNK

REACTIONS (2)
  - PAIN [None]
  - ACTIVITIES OF DAILY LIVING IMPAIRED [None]
